FAERS Safety Report 9567911 (Version 1)
Quarter: 2013Q3

REPORT INFORMATION
  Report Type: Spontaneous
  Country: US (occurrence: US)
  Receive Date: 20130930
  Receipt Date: 20130930
  Transmission Date: 20140515
  Serious: No
  Sender: FDA-Public Use
  Company Number: US-AMGEN-USASP2013056887

PATIENT
  Age: 58 Year
  Sex: Female

DRUGS (24)
  1. ENBREL [Suspect]
     Indication: RHEUMATOID ARTHRITIS
     Dosage: UNK, 2 TIMES/WK
     Route: 065
  2. PEPCID                             /00305201/ [Concomitant]
     Dosage: UNK
  3. FLONASE                            /00908302/ [Concomitant]
     Dosage: UNK
  4. ALBUTEROL                          /00139501/ [Concomitant]
     Dosage: UNK
  5. BENADRYL                           /00000402/ [Concomitant]
     Dosage: UNK
  6. CLOBETASOL [Concomitant]
     Dosage: UNK
  7. PREDNISONE [Concomitant]
     Dosage: UNK
  8. METHOTREXATE [Concomitant]
     Dosage: UNK
  9. OXYCONTIN [Concomitant]
     Dosage: UNK
  10. AMERGE [Concomitant]
     Dosage: UNK
  11. IMITREX                            /01044801/ [Concomitant]
     Dosage: UNK
  12. FIORICET WITH CODEINE [Concomitant]
     Dosage: UNK
  13. TOPROL [Concomitant]
     Dosage: UNK
  14. DIGOXIN [Concomitant]
     Dosage: UNK
  15. XARELTO [Concomitant]
     Dosage: UNK
  16. PRAVASTATIN [Concomitant]
     Dosage: UNK
  17. FLEXERIL                           /00428402/ [Concomitant]
     Dosage: UNK
  18. MAGNESIUM [Concomitant]
     Dosage: UNK
  19. IRON [Concomitant]
     Dosage: UNK
  20. FOLIC ACID [Concomitant]
     Dosage: UNK
  21. VITAMIN D3 [Concomitant]
     Dosage: UNK
  22. VITAMIN B2                         /00154901/ [Concomitant]
     Dosage: UNK
  23. EPIPEN [Concomitant]
     Dosage: UNK
  24. ALLEGRA [Concomitant]
     Dosage: UNK

REACTIONS (1)
  - Headache [Recovered/Resolved]
